FAERS Safety Report 15541400 (Version 1)
Quarter: 2018Q4

REPORT INFORMATION
  Report Type: Spontaneous
  Country: US (occurrence: US)
  Receive Date: 20181023
  Receipt Date: 20181023
  Transmission Date: 20190205
  Serious: Yes (Hospitalization, Other)
  Sender: FDA-Public Use
  Company Number: US-ASTELLAS-2018US044956

PATIENT
  Age: 13 Year
  Sex: Female

DRUGS (2)
  1. LIP-AMPHOTERICIN [Concomitant]
     Active Substance: AMPHOTERICIN B
     Indication: MUCORMYCOSIS
     Dosage: UNK UNK, UNKNOWN FREQ.
     Route: 065
  2. MICAFUNGIN. [Suspect]
     Active Substance: MICAFUNGIN SODIUM
     Indication: MUCORMYCOSIS
     Dosage: UNK UNK, UNKNOWN FREQ.
     Route: 065

REACTIONS (11)
  - Hypoxia [Unknown]
  - Acute kidney injury [Unknown]
  - Dry gangrene [Unknown]
  - Mucormycosis [Unknown]
  - Infectious pleural effusion [Unknown]
  - Peripheral ischaemia [Unknown]
  - Infective pericardial effusion [Unknown]
  - Pulmonary necrosis [Unknown]
  - Product use in unapproved indication [Unknown]
  - Infection [Unknown]
  - Cardiac tamponade [Unknown]
